FAERS Safety Report 9310478 (Version 2)
Quarter: 2013Q3

REPORT INFORMATION
  Report Type: Spontaneous
  Country: US (occurrence: US)
  Receive Date: 20130527
  Receipt Date: 20130726
  Transmission Date: 20140515
  Serious: No
  Sender: FDA-Public Use
  Company Number: US-PFIZER INC-2013157128

PATIENT
  Age: 67 Year
  Sex: Male

DRUGS (25)
  1. XELJANZ [Suspect]
     Indication: RHEUMATOID ARTHRITIS
     Dosage: 5 MG (ONE TABLET) TWICE DAILY
     Route: 048
     Dates: start: 20130317
  2. COZAAR [Concomitant]
     Dosage: UNK
  3. COREG [Concomitant]
     Dosage: UNK
  4. SINGULAIR [Concomitant]
     Dosage: UNK
  5. PREDNISONE [Concomitant]
     Dosage: UNK
  6. ROBAXIN [Concomitant]
     Dosage: UNK
  7. FOLIC ACID [Concomitant]
     Dosage: UNK
  8. ADVAIR [Concomitant]
     Dosage: UNK
  9. VERAPAMIL [Concomitant]
     Dosage: UNK
  10. PAMELOR [Concomitant]
     Dosage: UNK
  11. IBUPROFEN [Concomitant]
     Dosage: UNK
  12. SPIRIVA [Concomitant]
     Dosage: UNK
  13. LORTAB [Concomitant]
     Dosage: UNK
  14. PERCOCET [Concomitant]
     Dosage: UNK
  15. POTASSIUM GLUCONATE [Concomitant]
     Dosage: UNK
  16. VITAMIN C [Concomitant]
     Dosage: UNK
  17. ALBUTEROL SULFATE [Concomitant]
     Dosage: UNK
  18. CALCIUM PLUS VIT D [Concomitant]
     Dosage: UNK
  19. LUNESTA [Concomitant]
     Dosage: UNK
  20. FLONASE [Concomitant]
     Dosage: UNK
  21. LASIX [Concomitant]
     Dosage: UNK
  22. ALPRAZOLAM [Concomitant]
     Dosage: UNK
  23. KLOR-CON [Concomitant]
     Dosage: UNK
  24. PROAIR HFA [Concomitant]
     Dosage: UNK
  25. METHOCARBAMOL [Concomitant]
     Dosage: UNK

REACTIONS (1)
  - Insomnia [Unknown]
